FAERS Safety Report 8858446 (Version 2)
Quarter: 2012Q4

REPORT INFORMATION
  Report Type: 
  Country: AU (occurrence: AU)
  Receive Date: 20121024
  Receipt Date: 20121121
  Transmission Date: 20130627
  Serious: Yes (Other)
  Sender: FDA-Public Use
  Company Number: AU-AMGEN-AUSSP2012067163

PATIENT
  Age: 90 Year
  Sex: Female

DRUGS (6)
  1. PROLIA [Suspect]
     Indication: PRODUCT USED FOR UNKNOWN INDICATION
     Dosage: UNK
     Dates: start: 20121008
  2. CALCIUM CHANNEL BLOCKERS [Concomitant]
     Indication: BLOOD PRESSURE
  3. SYMBICORT [Concomitant]
     Indication: BLOOD PRESSURE
  4. PERSANTIN [Concomitant]
     Indication: BLOOD PRESSURE
  5. ASPIRIN [Concomitant]
  6. TRICYCLIC ANTIDEPRESSANTS [Concomitant]

REACTIONS (3)
  - Temporal arteritis [Unknown]
  - Blindness unilateral [Not Recovered/Not Resolved]
  - Pain in jaw [Recovered/Resolved]
